FAERS Safety Report 5452092-9 (Version None)
Quarter: 2007Q3

REPORT INFORMATION
  Report Type: 
  Country: None (occurrence: None)
  Receive Date: 20070803
  Receipt Date: 20070201
  Transmission Date: 20080115
  Serious: Yes (Hospitalization)
  Sender: FDA-Public Use
  Company Number: 07P-163-0355707-00

PATIENT
  Age: 68 Year
  Sex: Male

DRUGS (5)
  1. NORVIR [Suspect]
     Indication: HIV INFECTION
     Dosage: 100 MG, PER ORAL
     Route: 048
     Dates: start: 20051201
  2. APTIVUS [Suspect]
     Indication: HIV INFECTION
     Dosage: 250 MG, PER ORAL
     Route: 048
     Dates: start: 20051201
  3. SEVERAL OTHER UNSPECIFIED MEDICATIONS [Concomitant]
  4. EFAVIRENZ [Suspect]
     Indication: HIV INFECTION
  5. ABACAVIR SULFATE [Suspect]
     Indication: HIV INFECTION

REACTIONS (3)
  - DIARRHOEA [None]
  - LIVER FUNCTION TEST ABNORMAL [None]
  - THROMBOCYTOPENIA [None]
